FAERS Safety Report 15098360 (Version 1)
Quarter: 2018Q3

REPORT INFORMATION
  Report Type: Spontaneous
  Country: IT (occurrence: IT)
  Receive Date: 20180702
  Receipt Date: 20180702
  Transmission Date: 20181010
  Serious: Yes (Hospitalization)
  Sender: FDA-Public Use
  Company Number: IT-JNJFOC-20180639936

PATIENT
  Age: 89 Year
  Sex: Male

DRUGS (5)
  1. XARELTO [Suspect]
     Active Substance: RIVAROXABAN
     Indication: ATRIAL FIBRILLATION
     Route: 048
     Dates: start: 20170101, end: 20171103
  2. LASIX [Concomitant]
     Active Substance: FUROSEMIDE
     Route: 065
  3. APROVEL [Concomitant]
     Active Substance: IRBESARTAN
     Route: 065
  4. KANRENOL [Concomitant]
     Active Substance: CANRENOATE POTASSIUM
     Route: 065
  5. DOXAZOSIN MESILATE [Concomitant]
     Active Substance: DOXAZOSIN MESYLATE
     Route: 065

REACTIONS (4)
  - Loss of consciousness [Unknown]
  - Malaise [Unknown]
  - Gastric haemorrhage [Unknown]
  - Anaemia [Unknown]

NARRATIVE: CASE EVENT DATE: 20171103
